FAERS Safety Report 11493635 (Version 4)
Quarter: 2016Q1

REPORT INFORMATION
  Report Type: Report from Study
  Country: JP (occurrence: JP)
  Receive Date: 20150911
  Receipt Date: 20160312
  Transmission Date: 20160525
  Serious: Yes (Other)
  Sender: FDA-Public Use
  Company Number: JP-BRISTOL-MYERS SQUIBB COMPANY-BMS-2015-010956

PATIENT
  Age: 51 Year
  Sex: Female

DRUGS (8)
  1. NIVOLUMAB [Suspect]
     Active Substance: NIVOLUMAB
     Indication: MALIGNANT MELANOMA
     Dosage: 2 MG/KG, QD
     Route: 065
     Dates: start: 20150205, end: 20150205
  2. NIVOLUMAB [Suspect]
     Active Substance: NIVOLUMAB
     Dosage: 2 MG/KG, QD
     Route: 065
     Dates: start: 20150507, end: 20150507
  3. NIVOLUMAB [Suspect]
     Active Substance: NIVOLUMAB
     Dosage: 2 MG/KG, QD
     Route: 065
     Dates: start: 20150716, end: 20150716
  4. NIVOLUMAB [Suspect]
     Active Substance: NIVOLUMAB
     Dosage: 2 MG/KG, QD
     Route: 065
     Dates: start: 20150625, end: 20150625
  5. NIVOLUMAB [Suspect]
     Active Substance: NIVOLUMAB
     Dosage: 2 MG/KG, QD
     Route: 065
     Dates: start: 20150326, end: 20150326
  6. NIVOLUMAB [Suspect]
     Active Substance: NIVOLUMAB
     Dosage: 2 MG/KG, QD
     Route: 065
     Dates: start: 20150226, end: 20150226
  7. NIVOLUMAB [Suspect]
     Active Substance: NIVOLUMAB
     Dosage: 2 MG/KG, QD
     Route: 065
     Dates: start: 20150604, end: 20150604
  8. NIVOLUMAB [Suspect]
     Active Substance: NIVOLUMAB
     Dosage: 2 MG/KG, QD
     Route: 065
     Dates: start: 20150416, end: 20150416

REACTIONS (10)
  - Urticaria [Unknown]
  - White blood cell count decreased [Unknown]
  - Enterocolitis [Unknown]
  - Pneumonia [Unknown]
  - Somnolence [Unknown]
  - Hypothyroidism [Recovered/Resolved]
  - Pyrexia [Unknown]
  - Interstitial lung disease [Unknown]
  - Dry skin [Unknown]
  - Diarrhoea [Not Recovered/Not Resolved]

NARRATIVE: CASE EVENT DATE: 2015
